FAERS Safety Report 10219302 (Version 7)
Quarter: 2015Q1

REPORT INFORMATION
  Report Type: Spontaneous
  Country: JP (occurrence: JP)
  Receive Date: 20140605
  Receipt Date: 20150313
  Transmission Date: 20150720
  Serious: Yes (Hospitalization, Other)
  Sender: FDA-Public Use
  Company Number: JP-ABBVIE-14P-087-1241977-00

PATIENT
  Age: 65 Year
  Sex: Male

DRUGS (7)
  1. RIFAMPICIN [Suspect]
     Active Substance: RIFAMPIN
     Indication: TUBERCULOSIS
     Route: 065
  2. ISONIAZID. [Suspect]
     Active Substance: ISONIAZID
     Indication: TUBERCULOSIS
     Route: 065
  3. HUMIRA [Suspect]
     Active Substance: ADALIMUMAB
     Route: 065
  4. HUMIRA [Suspect]
     Active Substance: ADALIMUMAB
     Route: 065
     Dates: end: 20140529
  5. ETHAMBUTOL HYDROCHLORIDE. [Suspect]
     Active Substance: ETHAMBUTOL HYDROCHLORIDE
     Indication: TUBERCULOSIS
     Route: 065
  6. HUMIRA [Suspect]
     Active Substance: ADALIMUMAB
     Indication: CROHN^S DISEASE
     Route: 058
     Dates: start: 20140220, end: 20140220
  7. PYRAZINAMIDE. [Suspect]
     Active Substance: PYRAZINAMIDE
     Indication: TUBERCULOSIS
     Route: 065

REACTIONS (5)
  - Gastrointestinal perforation [Recovering/Resolving]
  - Tuberculous pleurisy [Recovered/Resolved]
  - Hepatic function abnormal [Unknown]
  - Tuberculosis gastrointestinal [Recovered/Resolved]
  - Peritoneal tuberculosis [Recovered/Resolved]

NARRATIVE: CASE EVENT DATE: 20140526
